FAERS Safety Report 11030952 (Version 1)
Quarter: 2015Q2

REPORT INFORMATION
  Report Type: Spontaneous
  Country: US (occurrence: None)
  Receive Date: 20150414
  Receipt Date: 20150414
  Transmission Date: 20150821
  Serious: Yes (Hospitalization, Disabling)
  Sender: FDA-Public Use
  Company Number: None

PATIENT
  Age: 10 Year
  Sex: Male
  Weight: 34.02 kg

DRUGS (11)
  1. FLINSTONES VITAMINS [Concomitant]
  2. KETONE TEST STRIPS [Concomitant]
  3. COUGH AND COLD MEDICATIONS AS NEEDED [Concomitant]
  4. VYVANSE [Suspect]
     Active Substance: LISDEXAMFETAMINE DIMESYLATE
     Indication: DISTURBANCE IN ATTENTION
     Dosage: 1 TABLET
     Route: 048
  5. GLUCAGON. [Concomitant]
     Active Substance: GLUCAGON
  6. CONTOUR BLOOD GLUCOSE MONITOR AND TESTING STRIPS [Concomitant]
  7. OTC ALLERGY [Concomitant]
  8. NOVALOG [Concomitant]
  9. LANTUS [Concomitant]
     Active Substance: INSULIN GLARGINE
  10. PEN NEEDLES [Concomitant]
  11. PAIN [Concomitant]
     Active Substance: UNSPECIFIED INGREDIENT

REACTIONS (1)
  - Type 1 diabetes mellitus [None]

NARRATIVE: CASE EVENT DATE: 20140422
